FAERS Safety Report 13879546 (Version 13)
Quarter: 2018Q1

REPORT INFORMATION
  Report Type: Report from Study
  Country: None (occurrence: JP)
  Receive Date: 20170817
  Receipt Date: 20180327
  Transmission Date: 20180508
  Serious: Yes (Death, Hospitalization)
  Sender: FDA-Public Use
  Company Number: JP-ABBVIE-17P-087-1886104-00

PATIENT
  Age: 68 Year
  Sex: Male

DRUGS (29)
  1. DUODOPA [Suspect]
     Active Substance: CARBIDOPA\LEVODOPA
     Indication: PARKINSON^S DISEASE
     Route: 050
     Dates: start: 20170214, end: 20170214
  2. ROTIGOTINE [Concomitant]
     Active Substance: ROTIGOTINE
     Route: 062
     Dates: start: 20170526, end: 20170606
  3. DOMPERIDONE [Concomitant]
     Active Substance: DOMPERIDONE
     Indication: PRODUCT USED FOR UNKNOWN INDICATION
     Route: 048
     Dates: end: 20180207
  4. ZOPICLONE [Concomitant]
     Active Substance: ZOPICLONE
     Indication: PRODUCT USED FOR UNKNOWN INDICATION
     Route: 048
     Dates: end: 20180206
  5. DUODOPA [Suspect]
     Active Substance: CARBIDOPA\LEVODOPA
     Dosage: MCD: 1.8 ML/H, INCREASED 1.9 ML/H BEFORE NOON, INCREASED 2.0 ML/H BEFORE SUPPER
     Route: 050
     Dates: start: 201702
  6. DUODOPA [Suspect]
     Active Substance: CARBIDOPA\LEVODOPA
     Route: 050
     Dates: end: 20180207
  7. DUODOPA [Suspect]
     Active Substance: CARBIDOPA\LEVODOPA
     Dosage: MD: 0 ML, CD: 1.8 ML/HR X 16 HR, ED: 2.0 ML/UNIT X 3
     Route: 050
     Dates: start: 20170525, end: 20170902
  8. ROTIGOTINE [Concomitant]
     Active Substance: ROTIGOTINE
     Route: 062
     Dates: start: 20170513, end: 20170525
  9. ROTIGOTINE [Concomitant]
     Active Substance: ROTIGOTINE
     Route: 062
     Dates: start: 20170902, end: 20170913
  10. CLONAZEPAM. [Concomitant]
     Active Substance: CLONAZEPAM
     Indication: PRODUCT USED FOR UNKNOWN INDICATION
     Route: 048
     Dates: end: 20180206
  11. LORATADINE. [Concomitant]
     Active Substance: LORATADINE
     Indication: PRODUCT USED FOR UNKNOWN INDICATION
     Route: 048
     Dates: end: 20180207
  12. DUODOPA [Suspect]
     Active Substance: CARBIDOPA\LEVODOPA
     Dosage: MD: 0 ML, CD: 1.8 ML/HR X 16 HR, ED: 2.0 ML/UNIT X 3
     Route: 050
     Dates: start: 20170913, end: 20180207
  13. ROTIGOTINE [Concomitant]
     Active Substance: ROTIGOTINE
     Route: 062
     Dates: start: 20170607, end: 20180207
  14. DUODOPA [Suspect]
     Active Substance: CARBIDOPA\LEVODOPA
     Dosage: MD: 3 ML, CD: 1.8 ML/HR X 16 HR, ED: 1.8 ML/UNIT X 2
     Route: 050
     Dates: start: 20170215
  15. MAGNESIUM OXIDE. [Concomitant]
     Active Substance: MAGNESIUM OXIDE
     Indication: PRODUCT USED FOR UNKNOWN INDICATION
     Route: 048
     Dates: end: 20180207
  16. ETIZOLAM [Concomitant]
     Active Substance: ETIZOLAM
     Indication: PRODUCT USED FOR UNKNOWN INDICATION
     Route: 048
     Dates: end: 20180206
  17. VONOPRAZAN FUMARATE [Concomitant]
     Active Substance: VONOPRAZAN FUMURATE
     Indication: PRODUCT USED FOR UNKNOWN INDICATION
     Route: 048
     Dates: start: 20170217, end: 20170319
  18. DUODOPA [Suspect]
     Active Substance: CARBIDOPA\LEVODOPA
     Dosage: MD: 3 ML, CD: 1.8 ML/HR X 16 HR, ED: 1.9 ML/UNIT X 4
     Route: 050
     Dates: start: 20170222, end: 20170513
  19. ROTIGOTINE [Concomitant]
     Active Substance: ROTIGOTINE
     Indication: PRODUCT USED FOR UNKNOWN INDICATION
     Dosage: DURING SLEEP (NOT DAYTIME)
     Route: 062
     Dates: end: 20170606
  20. ROTIGOTINE [Concomitant]
     Active Substance: ROTIGOTINE
     Route: 062
     Dates: end: 20170512
  21. ROTIGOTINE [Concomitant]
     Active Substance: ROTIGOTINE
     Route: 062
     Dates: start: 20170914, end: 20180207
  22. LANSOPRAZOLE. [Concomitant]
     Active Substance: LANSOPRAZOLE
     Indication: PROPHYLAXIS
     Route: 048
     Dates: start: 20170419, end: 20170426
  23. DOPACOL [Concomitant]
     Active Substance: CARBIDOPA\LEVODOPA
     Route: 048
     Dates: start: 20170902, end: 20170913
  24. REBAMIPIDE [Concomitant]
     Active Substance: REBAMIPIDE
     Indication: PRODUCT USED FOR UNKNOWN INDICATION
     Route: 048
     Dates: end: 20180207
  25. RAMELTEON [Concomitant]
     Active Substance: RAMELTEON
     Indication: PRODUCT USED FOR UNKNOWN INDICATION
     Route: 048
     Dates: end: 20180206
  26. ROTIGOTINE [Concomitant]
     Active Substance: ROTIGOTINE
     Route: 062
     Dates: start: 20170607, end: 20170901
  27. DOPACOL [Concomitant]
     Active Substance: CARBIDOPA\LEVODOPA
     Indication: PRODUCT USED FOR UNKNOWN INDICATION
     Route: 048
     Dates: start: 20180207
  28. DOPACOL [Concomitant]
     Active Substance: CARBIDOPA\LEVODOPA
     Route: 048
     Dates: start: 20170513, end: 20170525
  29. TAMSULOSIN HYDROCHLORIDE. [Concomitant]
     Active Substance: TAMSULOSIN HYDROCHLORIDE
     Indication: PRODUCT USED FOR UNKNOWN INDICATION
     Route: 048
     Dates: end: 20180207

REACTIONS (17)
  - Neuropathy peripheral [Not Recovered/Not Resolved]
  - Device breakage [Not Recovered/Not Resolved]
  - Condition aggravated [Recovered/Resolved]
  - Cardio-respiratory arrest [Fatal]
  - General physical health deterioration [Unknown]
  - Device occlusion [Unknown]
  - Dehydration [Recovered/Resolved]
  - Movement disorder [Recovered/Resolved]
  - Asphyxia [Fatal]
  - Epilepsy [Not Recovered/Not Resolved]
  - Catheter site dermatitis [Recovered/Resolved]
  - Device occlusion [Recovered/Resolved]
  - Motor dysfunction [Recovered/Resolved]
  - On and off phenomenon [Unknown]
  - Unintentional medical device removal [Recovered/Resolved]
  - Epilepsy [Not Recovered/Not Resolved]
  - Excessive granulation tissue [Recovering/Resolving]

NARRATIVE: CASE EVENT DATE: 2017
